FAERS Safety Report 7610923-8 (Version None)
Quarter: 2011Q3

REPORT INFORMATION
  Report Type: 
  Country: None (occurrence: None)
  Receive Date: 20110715
  Receipt Date: 20110712
  Transmission Date: 20111222
  Serious: Yes (Disabling, Other)
  Sender: FDA-Public Use
  Company Number: DE-BRISTOL-MYERS SQUIBB COMPANY-15896426

PATIENT
  Age: 70 Year
  Sex: Male
  Weight: 75 kg

DRUGS (1)
  1. IPILIMUMAB [Suspect]
     Indication: MALIGNANT MELANOMA
     Dosage: ALSO 216MG. VIAL NO:CH.B.2011-07-00026
     Route: 042
     Dates: start: 20110701

REACTIONS (6)
  - DYSPNOEA [None]
  - NEOPLASM MALIGNANT [None]
  - VOMITING [None]
  - MUSCULAR WEAKNESS [None]
  - FATIGUE [None]
  - CHEST PAIN [None]
